FAERS Safety Report 19678603 (Version 4)
Quarter: 2022Q2

REPORT INFORMATION
  Report Type: Spontaneous
  Country: US (occurrence: US)
  Receive Date: 20210809
  Receipt Date: 20220421
  Transmission Date: 20220721
  Serious: No
  Sender: FDA-Public Use
  Company Number: US-PFIZER INC-2021889894

PATIENT
  Age: 11 Year
  Sex: Female

DRUGS (2)
  1. GENOTROPIN [Suspect]
     Active Substance: SOMATROPIN
     Indication: Septo-optic dysplasia
     Dosage: 0.4 MG, DAILY
  2. GENOTROPIN [Suspect]
     Active Substance: SOMATROPIN
     Dosage: 0.8 MG (6 DAYS A WEEK)
     Dates: start: 20121110

REACTIONS (2)
  - Device mechanical issue [Unknown]
  - Off label use [Unknown]

NARRATIVE: CASE EVENT DATE: 20121110
